FAERS Safety Report 20031595 (Version 1)
Quarter: 2021Q4

REPORT INFORMATION
  Report Type: Spontaneous
  Country: DE (occurrence: DE)
  Receive Date: 20211103
  Receipt Date: 20211103
  Transmission Date: 20220303
  Serious: Yes (Other)
  Sender: FDA-Public Use
  Company Number: DE-ABBVIE-21K-062-4136015-00

PATIENT
  Age: 50 Year
  Sex: Female

DRUGS (15)
  1. GLECAPREVIR\PIBRENTASVIR [Suspect]
     Active Substance: GLECAPREVIR\PIBRENTASVIR
     Indication: Viraemia
     Route: 048
  2. DACLATASVIR [Concomitant]
     Active Substance: DACLATASVIR
     Indication: Antiviral treatment
     Dates: start: 201509
  3. SOFOSBUVIR [Concomitant]
     Active Substance: SOFOSBUVIR
     Indication: Antiviral treatment
     Dates: start: 201509, end: 201509
  4. SOFOSBUVIR [Concomitant]
     Active Substance: SOFOSBUVIR
  5. SOFOSBUVIR [Concomitant]
     Active Substance: SOFOSBUVIR
     Dates: start: 201804
  6. FLUPENTIXOL [Concomitant]
     Active Substance: FLUPENTIXOL
     Indication: Fatigue
  7. FLUPENTIXOL [Concomitant]
     Active Substance: FLUPENTIXOL
     Indication: Depression
  8. FLUPENTIXOL DIHYDROCHLORIDE\MELITRACEN HYDROCHLORIDE [Concomitant]
     Active Substance: FLUPENTIXOL DIHYDROCHLORIDE\MELITRACEN HYDROCHLORIDE
     Indication: Fatigue
  9. FLUPENTIXOL DIHYDROCHLORIDE\MELITRACEN HYDROCHLORIDE [Concomitant]
     Active Substance: FLUPENTIXOL DIHYDROCHLORIDE\MELITRACEN HYDROCHLORIDE
     Indication: Depression
  10. VELPATASVIR [Concomitant]
     Active Substance: VELPATASVIR
     Indication: Antiviral treatment
     Dates: start: 2015
  11. VELPATASVIR [Concomitant]
     Active Substance: VELPATASVIR
     Dates: start: 201804
  12. RIBAVIRIN [Concomitant]
     Active Substance: RIBAVIRIN
     Indication: Product used for unknown indication
     Dosage: WEIGHT-BASED 1000 200AMG IN 2 DOSES
     Dates: start: 2015
  13. RIBAVIRIN [Concomitant]
     Active Substance: RIBAVIRIN
     Dosage: WEIGHT-BASED 1000 200AMG
     Dates: start: 201804
  14. VOXILAPREVIR [Concomitant]
     Active Substance: VOXILAPREVIR
     Indication: Product used for unknown indication
     Dates: start: 201804
  15. OMEPRAZOLE [Concomitant]
     Active Substance: OMEPRAZOLE
     Indication: Product used for unknown indication
     Dates: start: 2016

REACTIONS (1)
  - Hepatocellular carcinoma [Unknown]
